FAERS Safety Report 22764478 (Version 8)
Quarter: 2024Q2

REPORT INFORMATION
  Report Type: Spontaneous
  Country: US (occurrence: US)
  Receive Date: 20230731
  Receipt Date: 20240423
  Transmission Date: 20240716
  Serious: Yes (Disabling)
  Sender: FDA-Public Use
  Company Number: US-SA-SAC20230727001410

PATIENT
  Age: 11 Year
  Sex: Male

DRUGS (3)
  1. DUPIXENT [Suspect]
     Active Substance: DUPILUMAB
     Indication: Dermatitis atopic
     Dosage: 200 MG, 1X
     Route: 058
     Dates: start: 20230719, end: 20230719
  2. DUPIXENT [Suspect]
     Active Substance: DUPILUMAB
     Indication: Eczema
     Dosage: 200 MG, QOW
     Route: 058
     Dates: start: 202308
  3. TACROLIMUS [Concomitant]
     Active Substance: TACROLIMUS

REACTIONS (16)
  - Loss of personal independence in daily activities [Unknown]
  - Sleep disorder [Unknown]
  - Condition aggravated [Unknown]
  - Scratch [Unknown]
  - Headache [Unknown]
  - Butterfly rash [Recovering/Resolving]
  - Skin burning sensation [Unknown]
  - Skin exfoliation [Unknown]
  - Pruritus [Unknown]
  - Dry eye [Unknown]
  - Rash [Not Recovered/Not Resolved]
  - Eye pruritus [Unknown]
  - Condition aggravated [Unknown]
  - Eczema [Unknown]
  - Drug ineffective [Unknown]
  - Incorrect dose administered [Unknown]

NARRATIVE: CASE EVENT DATE: 20230101
